FAERS Safety Report 13176810 (Version 7)
Quarter: 2019Q2

REPORT INFORMATION
  Report Type: Report from Study
  Country: None (occurrence: US)
  Receive Date: 20170201
  Receipt Date: 20190509
  Transmission Date: 20190711
  Serious: Yes (Hospitalization, Other)
  Sender: FDA-Public Use
  Company Number: US-ABBVIE-16K-163-1804860-00

PATIENT
  Age: 55 Year
  Sex: Female
  Weight: 118.49 kg

DRUGS (23)
  1. PREDNISONE. [Suspect]
     Active Substance: PREDNISONE
     Indication: CROHN^S DISEASE
     Dosage: TAPER
     Route: 042
     Dates: start: 201610, end: 201610
  2. PREDNISONE. [Suspect]
     Active Substance: PREDNISONE
     Dosage: WEANING DOSES
     Route: 048
     Dates: start: 201610, end: 201611
  3. LIALDA [Concomitant]
     Active Substance: MESALAMINE
     Indication: CROHN^S DISEASE
  4. VALIUM [Concomitant]
     Active Substance: DIAZEPAM
     Indication: ANXIETY
  5. BYDUREON [Concomitant]
     Active Substance: EXENATIDE
     Indication: DIABETES MELLITUS
  6. HUMIRA [Suspect]
     Active Substance: ADALIMUMAB
     Route: 058
     Dates: end: 2017
  7. INVOKANA [Concomitant]
     Active Substance: CANAGLIFLOZIN
     Indication: DIABETES MELLITUS
  8. LISINOPRIL. [Concomitant]
     Active Substance: LISINOPRIL
     Indication: HYPERTENSION
  9. BENTYL [Concomitant]
     Active Substance: DICYCLOMINE HYDROCHLORIDE
     Indication: CROHN^S DISEASE
  10. HUMIRA [Suspect]
     Active Substance: ADALIMUMAB
     Indication: CROHN^S DISEASE
     Dosage: LOADING DOSE
     Route: 058
     Dates: start: 2014, end: 2014
  11. PREDNISONE. [Suspect]
     Active Substance: PREDNISONE
     Route: 042
     Dates: start: 201611, end: 201611
  12. GLIPIZIDE. [Concomitant]
     Active Substance: GLIPIZIDE
     Indication: DIABETES MELLITUS
  13. LOVASTATIN. [Concomitant]
     Active Substance: LOVASTATIN
     Indication: BLOOD CHOLESTEROL INCREASED
  14. CYMBALTA [Concomitant]
     Active Substance: DULOXETINE HYDROCHLORIDE
     Indication: PYODERMA GANGRENOSUM
  15. LEVOTHYROXINE. [Concomitant]
     Active Substance: LEVOTHYROXINE
     Indication: HYPOTHYROIDISM
  16. DEXILANT [Concomitant]
     Active Substance: DEXLANSOPRAZOLE
     Indication: GASTROOESOPHAGEAL REFLUX DISEASE
  17. PREDNISONE. [Suspect]
     Active Substance: PREDNISONE
     Route: 048
     Dates: start: 201611, end: 20161222
  18. LOMOTIL [Concomitant]
     Active Substance: ATROPINE SULFATE\DIPHENOXYLATE HYDROCHLORIDE
     Indication: CROHN^S DISEASE
  19. NPH INSULIN [Concomitant]
     Active Substance: INSULIN BEEF
     Indication: BLOOD GLUCOSE INCREASED
     Dosage: DAILY, DECREASED TO SLIDING SCALE
     Dates: start: 201610
  20. ZYRTEC [Concomitant]
     Active Substance: CETIRIZINE HYDROCHLORIDE
     Indication: HYPERSENSITIVITY
  21. HUMIRA [Suspect]
     Active Substance: ADALIMUMAB
     Route: 058
  22. NORVASC [Concomitant]
     Active Substance: AMLODIPINE BESYLATE
     Indication: HYPERTENSION
  23. CYMBALTA [Concomitant]
     Active Substance: DULOXETINE HYDROCHLORIDE
     Indication: PAIN

REACTIONS (18)
  - Surgical failure [Unknown]
  - Colitis [Unknown]
  - Gastroenteritis viral [Recovered/Resolved]
  - Crohn^s disease [Recovered/Resolved]
  - Fall [Unknown]
  - Crohn^s disease [Recovered/Resolved]
  - Abdominal pain upper [Not Recovered/Not Resolved]
  - Cellulitis [Recovered/Resolved]
  - Generalised oedema [Recovering/Resolving]
  - Blood glucose increased [Recovering/Resolving]
  - Upper limb fracture [Recovering/Resolving]
  - Urinary tract infection [Not Recovered/Not Resolved]
  - Procedural intestinal perforation [Recovering/Resolving]
  - Intestinal prolapse [Recovering/Resolving]
  - Large intestine infection [Recovering/Resolving]
  - Cushingoid [Recovering/Resolving]
  - Crohn^s disease [Recovered/Resolved]
  - Crohn^s disease [Recovering/Resolving]

NARRATIVE: CASE EVENT DATE: 201610
